FAERS Safety Report 8736032 (Version 2)
Quarter: 2012Q4

REPORT INFORMATION
  Report Type: Report from Study
  Country: FR (occurrence: FR)
  Receive Date: 20120822
  Receipt Date: 20121227
  Transmission Date: 20130627
  Serious: Yes (Other)
  Sender: FDA-Public Use
  Company Number: FR-CELGENEUS-056-21880-12081152

PATIENT
  Age: 42 Year
  Sex: Female
  Weight: 57 kg

DRUGS (7)
  1. REVLIMID [Suspect]
     Indication: B-CELL LYMPHOMA
     Dosage: 25 Milligram
     Route: 048
     Dates: start: 20110315, end: 20110711
  2. RITUXIMAB [Concomitant]
     Indication: B-CELL LYMPHOMA
     Route: 065
     Dates: start: 20110315
  3. RITUXIMAB [Concomitant]
     Route: 065
     Dates: start: 20110927
  4. CYCLOPHOSPHAMIDE [Concomitant]
     Indication: B-CELL LYMPHOMA
     Route: 065
     Dates: start: 20110315, end: 20110809
  5. DAUNORUBICIN [Concomitant]
     Indication: B-CELL LYMPHOMA
     Route: 065
     Dates: start: 20110315, end: 20110809
  6. ONCOVIN [Concomitant]
     Indication: B-CELL LYMPHOMA
     Route: 065
     Dates: start: 20110315, end: 20110809
  7. PREDNISONE [Concomitant]
     Indication: B-CELL LYMPHOMA
     Route: 065
     Dates: start: 20110315, end: 20110809

REACTIONS (1)
  - Papillary thyroid cancer [Recovered/Resolved with Sequelae]
